FAERS Safety Report 16096152 (Version 3)
Quarter: 2019Q2

REPORT INFORMATION
  Report Type: Report from Study
  Country: US (occurrence: US)
  Receive Date: 20190320
  Receipt Date: 20190412
  Transmission Date: 20190711
  Serious: Yes (Hospitalization, Other)
  Sender: FDA-Public Use
  Company Number: US-ALEXION PHARMACEUTICALS INC.-A201904030

PATIENT
  Age: 52 Year
  Sex: Female

DRUGS (3)
  1. SOLIRIS [Suspect]
     Active Substance: ECULIZUMAB
     Indication: PAROXYSMAL NOCTURNAL HAEMOGLOBINURIA
     Dosage: UNK
     Route: 042
  2. SOLIRIS [Suspect]
     Active Substance: ECULIZUMAB
     Dosage: 1200 MG, Q 14 DAYS
     Route: 042
     Dates: start: 20090305
  3. SOLIRIS [Suspect]
     Active Substance: ECULIZUMAB
     Dosage: 900 MG, Q 14 DAYS
     Route: 042
     Dates: start: 20090305

REACTIONS (8)
  - Dysphagia [Unknown]
  - Chest pain [Unknown]
  - Fatigue [Unknown]
  - Platelet count decreased [Unknown]
  - Malaise [Unknown]
  - Red blood cell count decreased [Unknown]
  - Abdominal pain upper [Unknown]
  - Hospitalisation [Not Recovered/Not Resolved]

NARRATIVE: CASE EVENT DATE: 20190218
